FAERS Safety Report 15463043 (Version 2)
Quarter: 2018Q4

REPORT INFORMATION
  Report Type: Spontaneous
  Country: CA (occurrence: CA)
  Receive Date: 20181004
  Receipt Date: 20181024
  Transmission Date: 20190204
  Serious: Yes (Life-Threatening, Hospitalization, Other)
  Sender: FDA-Public Use
  Company Number: CA-ACCORD-072910

PATIENT
  Age: 61 Year
  Sex: Female

DRUGS (2)
  1. MYCOPHENOLIC ACID. [Suspect]
     Active Substance: MYCOPHENOLIC ACID
     Indication: IMMUNE-MEDIATED NECROTISING MYOPATHY
     Dosage: 1 G TWICE DAILY
  2. IMMUNOGLOBULIN NOS [Concomitant]
     Active Substance: IMMUNE GLOBULIN NOS
     Route: 042

REACTIONS (3)
  - Encephalopathy [Recovered/Resolved]
  - Off label use [Unknown]
  - Status epilepticus [Recovered/Resolved]
